FAERS Safety Report 6648451-9 (Version None)
Quarter: 2010Q1

REPORT INFORMATION
  Report Type: 
  Country: None (occurrence: None)
  Receive Date: 20100319
  Receipt Date: 20100305
  Transmission Date: 20100710
  Serious: No
  Sender: FDA-Public Use
  Company Number: 008316

PATIENT

DRUGS (2)
  1. KEPPRA [Suspect]
     Indication: CONVULSION
  2. DEPAKOTE [Suspect]

REACTIONS (2)
  - PLATELET COUNT ABNORMAL [None]
  - PLATELET FUNCTION TEST ABNORMAL [None]
